FAERS Safety Report 12875984 (Version 1)
Quarter: 2016Q4

REPORT INFORMATION
  Report Type: Spontaneous
  Country: US (occurrence: US)
  Receive Date: 20161024
  Receipt Date: 20161024
  Transmission Date: 20170207
  Serious: No
  Sender: FDA-Public Use
  Company Number: US-JAZZ-2016-US-015168

PATIENT
  Sex: Female

DRUGS (22)
  1. AMLODIPINE BESYLATE. [Concomitant]
     Active Substance: AMLODIPINE BESYLATE
  2. XYREM [Suspect]
     Active Substance: SODIUM OXYBATE
     Dosage: DOSE ADJUSTMENT
     Route: 048
     Dates: start: 200810, end: 200912
  3. CALTRATE [Concomitant]
     Active Substance: CALCIUM CARBONATE
  4. MODAFINIL. [Concomitant]
     Active Substance: MODAFINIL
  5. LINZESS [Concomitant]
     Active Substance: LINACLOTIDE
  6. XYREM [Suspect]
     Active Substance: SODIUM OXYBATE
     Dosage: 3 G, FIRST DOSE
     Route: 048
     Dates: start: 200912, end: 201008
  7. XYREM [Suspect]
     Active Substance: SODIUM OXYBATE
     Dosage: 3 G, FIRST DOSE
     Route: 048
     Dates: start: 201405, end: 2014
  8. XYREM [Suspect]
     Active Substance: SODIUM OXYBATE
     Dosage: 2 G, SECOND DOSE
     Route: 048
     Dates: start: 201405, end: 2014
  9. LORTAB [Concomitant]
     Active Substance: ACETAMINOPHEN\HYDROCODONE BITARTRATE
  10. NASONEX [Concomitant]
     Active Substance: MOMETASONE FUROATE
  11. XYREM [Suspect]
     Active Substance: SODIUM OXYBATE
     Indication: NARCOLEPSY
     Dosage: 2.25 G, BID
     Route: 048
     Dates: start: 200809, end: 200810
  12. XYREM [Suspect]
     Active Substance: SODIUM OXYBATE
     Dosage: 1 G, SECOND DOSE
     Route: 048
     Dates: start: 200912, end: 201008
  13. CENTRUM [Concomitant]
     Active Substance: VITAMINS
  14. MELOXICAM. [Concomitant]
     Active Substance: MELOXICAM
  15. XYREM [Suspect]
     Active Substance: SODIUM OXYBATE
     Dosage: 3 G, BID
     Route: 048
     Dates: start: 201207, end: 2013
  16. ADDERALL [Concomitant]
     Active Substance: AMPHETAMINE ASPARTATE\AMPHETAMINE SULFATE\DEXTROAMPHETAMINE SACCHARATE\DEXTROAMPHETAMINE SULFATE
  17. AMITIZA [Concomitant]
     Active Substance: LUBIPROSTONE
  18. XYREM [Suspect]
     Active Substance: SODIUM OXYBATE
     Dosage: 3 G, BID
     Route: 048
     Dates: start: 201106, end: 2011
  19. VERAMYST [Concomitant]
     Active Substance: FLUTICASONE FUROATE
  20. MULTIVITAMINS [Concomitant]
     Active Substance: VITAMINS
  21. CYCLOBENZAPRINE [Concomitant]
     Active Substance: CYCLOBENZAPRINE
  22. HYDROCODONE [Concomitant]
     Active Substance: HYDROCODONE

REACTIONS (1)
  - Costochondritis [Unknown]

NARRATIVE: CASE EVENT DATE: 2014
